FAERS Safety Report 21453797 (Version 2)
Quarter: 2022Q4

REPORT INFORMATION
  Report Type: Spontaneous
  Country: US (occurrence: CA)
  Receive Date: 20221013
  Receipt Date: 20221108
  Transmission Date: 20230113
  Serious: Yes (Life-Threatening, Other)
  Sender: FDA-Public Use
  Company Number: 2022A337666

PATIENT
  Sex: Female
  Weight: 81.6 kg

DRUGS (2)
  1. BREZTRI [Suspect]
     Active Substance: BUDESONIDE\FORMOTEROL\GLYCOPYRROLATE
     Indication: Chronic obstructive pulmonary disease
     Dosage: 160/9/4.9 MCG, 2 PUFFS TWICE EACH DAY
     Route: 055
  2. ALBUTEROL [Concomitant]
     Active Substance: ALBUTEROL
     Dosage: 90 MCG, 4 PUFFS AS NEEDED AS REQUIRED

REACTIONS (9)
  - Chronic obstructive pulmonary disease [Recovered/Resolved]
  - Device use issue [Unknown]
  - Incorrect dose administered by device [Recovered/Resolved]
  - Device malfunction [Unknown]
  - Dyspnoea [Not Recovered/Not Resolved]
  - Wrong technique in product usage process [Unknown]
  - Drug dose omission by device [Unknown]
  - Product label confusion [Unknown]
  - Product use issue [Unknown]
